FAERS Safety Report 9370493 (Version 2)
Quarter: 2014Q2

REPORT INFORMATION
  Report Type: Spontaneous
  Country: US (occurrence: US)
  Receive Date: 20130626
  Receipt Date: 20140428
  Transmission Date: 20141212
  Serious: Yes (Other)
  Sender: FDA-Public Use
  Company Number: US-GLAXOSMITHKLINE-A1028382A

PATIENT
  Age: 55 Year
  Sex: Female
  Weight: 102.3 kg

DRUGS (1)
  1. AVANDIA [Suspect]
     Indication: DIABETES MELLITUS
     Route: 048

REACTIONS (3)
  - Myocardial ischaemia [Unknown]
  - Cardiac failure congestive [Unknown]
  - Angina pectoris [Unknown]
